FAERS Safety Report 6337353-3 (Version None)
Quarter: 2009Q3

REPORT INFORMATION
  Report Type: 
  Country: None (occurrence: None)
  Receive Date: 20090901
  Receipt Date: 20090901
  Transmission Date: 20100115
  Serious: Yes (Disabling)
  Sender: FDA-Public Use
  Company Number: None

PATIENT
  Sex: Female
  Weight: 63.9572 kg

DRUGS (2)
  1. PREDNISONE TAB [Suspect]
     Indication: POLYMYALGIA RHEUMATICA
     Dosage: 2 TABS MORNING (ONCE) 4 WKS
     Dates: start: 20090629, end: 20090801
  2. TRAMADOL HCL [Suspect]
     Indication: PAIN
     Dosage: 1 TAB DAILY 8 WKS
     Dates: start: 20090629, end: 20090729

REACTIONS (16)
  - ABASIA [None]
  - BLOOD GLUCOSE ABNORMAL [None]
  - CRYING [None]
  - FATIGUE [None]
  - HAEMORRHAGE [None]
  - HEADACHE [None]
  - INFLUENZA LIKE ILLNESS [None]
  - INSOMNIA [None]
  - JOINT SWELLING [None]
  - MUSCLE SPASMS [None]
  - MUSCULAR WEAKNESS [None]
  - NO THERAPEUTIC RESPONSE [None]
  - PAIN [None]
  - POLYMYALGIA RHEUMATICA [None]
  - VISION BLURRED [None]
  - WEIGHT DECREASED [None]
